FAERS Safety Report 9373894 (Version 1)
Quarter: 2013Q2

REPORT INFORMATION
  Report Type: Spontaneous
  Country: US (occurrence: US)
  Receive Date: 20130628
  Receipt Date: 20130628
  Transmission Date: 20140414
  Serious: Yes (Death, Life-Threatening, Hospitalization, Other)
  Sender: FDA-Public Use
  Company Number: US-B.I. PHARMACEUTICALS,INC./RIDGEFIELD-2013-BI-18550GD

PATIENT
  Age: 79 Year
  Sex: Female
  Weight: 70 kg

DRUGS (2)
  1. PRADAXA [Suspect]
     Indication: ATRIAL FIBRILLATION
     Dosage: 300 MG
  2. PRADAXA [Suspect]
     Indication: CEREBROVASCULAR ACCIDENT PROPHYLAXIS

REACTIONS (5)
  - Traumatic intracranial haemorrhage [Fatal]
  - Coma [Unknown]
  - Fall [Unknown]
  - Brain midline shift [Unknown]
  - Thrombin time prolonged [Unknown]
